FAERS Safety Report 9146695 (Version 1)
Quarter: 2013Q1

REPORT INFORMATION
  Report Type: Spontaneous
  Country: US (occurrence: None)
  Receive Date: 20130212
  Receipt Date: 20130212
  Transmission Date: 20140127
  Serious: Yes (Death)
  Sender: FDA-Public Use
  Company Number: UTC-028868

PATIENT
  Age: 80 Year
  Sex: Male

DRUGS (10)
  1. TYVASO [Suspect]
     Indication: COR PULMONALE CHRONIC
     Dates: start: 20111004
  2. COMBIVENT [Concomitant]
  3. ADVAIR (SERETIDE/0142091) [Concomitant]
  4. NEURONTIN (GABPENTIN) [Concomitant]
  5. AMLODIPINE [Concomitant]
  6. FLOMAX (MORNIFLUMATE) [Concomitant]
  7. VISTARIL (HYDROXYZINE HYDROCHLORIDE) [Concomitant]
  8. TYLENOL (PARACETAMOL) [Concomitant]
  9. REVATIO (SILDENAFIL CITRATE) [Concomitant]
  10. TRAMADOL [Suspect]

REACTIONS (1)
  - Pulmonary arterial hypertension [None]
